FAERS Safety Report 19165532 (Version 3)
Quarter: 2021Q2

REPORT INFORMATION
  Report Type: Spontaneous
  Country: DE (occurrence: DE)
  Receive Date: 20210421
  Receipt Date: 20210610
  Transmission Date: 20210717
  Serious: Yes (Other)
  Sender: FDA-Public Use
  Company Number: DE-ORGANON-O2104DEU001632

PATIENT
  Sex: Female

DRUGS (1)
  1. IMPLANON NXT [Suspect]
     Active Substance: ETONOGESTREL
     Dosage: 1 ROD
     Dates: end: 20210225

REACTIONS (4)
  - Device placement issue [Recovered/Resolved]
  - Wrong technique in device usage process [Unknown]
  - Device embolisation [Recovered/Resolved]
  - Complication associated with device [Recovered/Resolved]
